FAERS Safety Report 9522729 (Version 1)
Quarter: 2013Q1

REPORT INFORMATION
  Report Type: Spontaneous
  Country: US (occurrence: None)
  Receive Date: 20130305
  Receipt Date: 20130305
  Transmission Date: 20140127
  Serious: Yes (Other)
  Sender: FDA-Public Use
  Company Number: 163-21880-11101342

PATIENT
  Age: 66 Year
  Sex: Female

DRUGS (1)
  1. REVLIMID [Suspect]
     Indication: PLASMA CELL MYELOMA
     Route: 048
     Dates: start: 20101029

REACTIONS (5)
  - Diarrhoea [None]
  - Abdominal discomfort [None]
  - Skin discolouration [None]
  - Gastric ulcer [None]
  - Abdominal pain upper [None]
